FAERS Safety Report 6919115-9 (Version None)
Quarter: 2010Q3

REPORT INFORMATION
  Report Type: 
  Country: None (occurrence: None)
  Receive Date: 20100811
  Receipt Date: 20100809
  Transmission Date: 20110219
  Serious: Yes (Life-Threatening, Hospitalization)
  Sender: FDA-Public Use
  Company Number: FR-SANOFI-AVENTIS-2010SA046785

PATIENT
  Age: 59 Year
  Sex: Male
  Weight: 74 kg

DRUGS (6)
  1. ELOXATIN [Suspect]
     Route: 041
     Dates: start: 20100802, end: 20100802
  2. GEMZAR [Suspect]
     Route: 042
     Dates: start: 20100802, end: 20100802
  3. ZOPHREN [Concomitant]
     Route: 065
     Dates: start: 20100802, end: 20100802
  4. SOLU-MEDROL [Concomitant]
     Indication: PREMEDICATION
     Route: 065
     Dates: start: 20100802, end: 20100802
  5. CALCIUM [Concomitant]
     Route: 065
     Dates: start: 20100802, end: 20100802
  6. MAGNESIUM [Concomitant]
     Route: 065
     Dates: start: 20100802, end: 20100802

REACTIONS (7)
  - CARDIAC ARREST [None]
  - CONVULSION [None]
  - ERYTHEMA [None]
  - HOT FLUSH [None]
  - LOSS OF CONSCIOUSNESS [None]
  - TREMOR [None]
  - VOMITING [None]
